FAERS Safety Report 13660795 (Version 2)
Quarter: 2020Q1

REPORT INFORMATION
  Report Type: Spontaneous
  Country: IE (occurrence: IE)
  Receive Date: 20170616
  Receipt Date: 20200213
  Transmission Date: 20200409
  Serious: Yes (Death, Other)
  Sender: FDA-Public Use
  Company Number: IE-PFIZER INC-2017262067

PATIENT
  Age: 29 Year
  Sex: Female

DRUGS (3)
  1. LYRICA [Suspect]
     Active Substance: PREGABALIN
     Indication: EPILEPSY
     Dosage: UNK
  2. XANAX [Suspect]
     Active Substance: ALPRAZOLAM
  3. LYRICA [Suspect]
     Active Substance: PREGABALIN
     Indication: GENERALISED ANXIETY DISORDER

REACTIONS (5)
  - Drug level increased [Fatal]
  - Intentional product misuse [Unknown]
  - Intentional overdose [Fatal]
  - Toxicity to various agents [Fatal]
  - Haemorrhage [Unknown]
